FAERS Safety Report 9555263 (Version 1)
Quarter: 2013Q3

REPORT INFORMATION
  Report Type: Spontaneous
  Country: US (occurrence: None)
  Receive Date: 20130830
  Receipt Date: 20130830
  Transmission Date: 20140515
  Serious: Yes (Hospitalization)
  Sender: FDA-Public Use
  Company Number: KV201300137

PATIENT
  Age: 31 Year
  Sex: Female

DRUGS (1)
  1. MAKENA [Suspect]
     Indication: PREMATURE DELIVERY
     Route: 030
     Dates: start: 20130218

REACTIONS (4)
  - Premature labour [None]
  - Blood pressure increased [None]
  - Headache [None]
  - Premature delivery [None]
